FAERS Safety Report 9100865 (Version 1)
Quarter: 2013Q1

REPORT INFORMATION
  Report Type: Spontaneous
  Country: JP (occurrence: JP)
  Receive Date: 20130214
  Receipt Date: 20130214
  Transmission Date: 20140127
  Serious: Yes (Hospitalization)
  Sender: FDA-Public Use
  Company Number: JP-BAXTER-2013BAX004678

PATIENT
  Sex: Female
  Weight: 67 kg

DRUGS (2)
  1. DIANEAL-N PD-4 1.5 PD SOLUTION [Suspect]
     Indication: DIABETIC NEPHROPATHY
     Route: 033
     Dates: start: 20110623
  2. EXTRANEAL [Suspect]
     Indication: DIABETIC NEPHROPATHY
     Route: 033

REACTIONS (1)
  - Obstructive airways disorder [Not Recovered/Not Resolved]
